FAERS Safety Report 9250317 (Version 1)
Quarter: 2013Q1

REPORT INFORMATION
  Report Type: Spontaneous
  Country: US (occurrence: None)
  Receive Date: 20130305
  Receipt Date: 20130305
  Transmission Date: 20140127
  Serious: Yes (Hospitalization)
  Sender: FDA-Public Use
  Company Number: 163-21880-12042919

PATIENT
  Age: 69 Year
  Sex: Female

DRUGS (2)
  1. REVLIMID [Suspect]
     Indication: PLASMA CELL MYELOMA
     Dosage: DAYS 1-14
     Route: 048
     Dates: start: 20120418, end: 20120425
  2. TRANSFUSION [Concomitant]

REACTIONS (6)
  - Pain [None]
  - Rash [None]
  - Dyspnoea [None]
  - Blood calcium decreased [None]
  - Abdominal pain upper [None]
  - Chills [None]
